APPROVED DRUG PRODUCT: EXTENDED PHENYTOIN SODIUM
Active Ingredient: PHENYTOIN SODIUM
Strength: 100MG EXTENDED
Dosage Form/Route: CAPSULE;ORAL
Application: A040684 | Product #001 | TE Code: AB
Applicant: TARO PHARMACEUTICAL INDUSTRIES LTD
Approved: Sep 5, 2006 | RLD: No | RS: No | Type: RX